FAERS Safety Report 23044708 (Version 3)
Quarter: 2024Q4

REPORT INFORMATION
  Report Type: Spontaneous
  Country: US (occurrence: US)
  Receive Date: 20231009
  Receipt Date: 20241115
  Transmission Date: 20250114
  Serious: Yes (Hospitalization)
  Sender: SANOFI AVENTIS
  Company Number: US-SA-SAC20231006001274

PATIENT
  Age: 71 Year
  Sex: Female

DRUGS (3)
  1. DUPIXENT [Suspect]
     Active Substance: DUPILUMAB
     Indication: Asthma
     Dosage: 300 MG, QOW
     Route: 058
     Dates: end: 2023
  2. DUPIXENT [Suspect]
     Active Substance: DUPILUMAB
     Dosage: 300 MG, QOW
     Route: 058
     Dates: start: 20220427, end: 2024
  3. TRAMADOL [Concomitant]
     Active Substance: TRAMADOL
     Indication: Sleep disorder
     Dosage: UNK

REACTIONS (4)
  - Asthma [Recovering/Resolving]
  - Asthma [Unknown]
  - Gastric operation [Unknown]
  - Memory impairment [Unknown]

NARRATIVE: CASE EVENT DATE: 20230904
